FAERS Safety Report 16678863 (Version 1)
Quarter: 2019Q3

REPORT INFORMATION
  Report Type: Spontaneous
  Country: US (occurrence: US)
  Receive Date: 20190623
  Receipt Date: 20190623
  Transmission Date: 20191004
  Serious: No
  Sender: FDA-Public Use
  Company Number: None

PATIENT
  Sex: Female

DRUGS (1)
  1. TALTZ [Suspect]
     Active Substance: IXEKIZUMAB
     Indication: PSORIASIS
     Dosage: ?          OTHER FREQUENCY: Q2WK; Q4WK AT WK 12?
     Route: 058
     Dates: start: 201902

REACTIONS (4)
  - Skin exfoliation [None]
  - Dry skin [None]
  - Rash pustular [None]
  - Acne [None]
